FAERS Safety Report 11199186 (Version 3)
Quarter: 2015Q3

REPORT INFORMATION
  Report Type: Spontaneous
  Country: US (occurrence: US)
  Receive Date: 20150618
  Receipt Date: 20150720
  Transmission Date: 20151125
  Serious: No
  Sender: FDA-Public Use
  Company Number: US-PFIZER INC-2015199704

PATIENT
  Age: 77 Year
  Sex: Female
  Weight: 62.13 kg

DRUGS (4)
  1. CYMBALTA [Interacting]
     Active Substance: DULOXETINE HYDROCHLORIDE
     Dosage: UNK
  2. LYRICA [Interacting]
     Active Substance: PREGABALIN
     Dosage: 1 DF, ALTERNATE DAY
  3. LYRICA [Interacting]
     Active Substance: PREGABALIN
     Dosage: 1 DF, DAILY
  4. LYRICA [Suspect]
     Active Substance: PREGABALIN
     Indication: FIBROMYALGIA
     Dosage: 75 MG, 2X/DAY

REACTIONS (6)
  - Feeling abnormal [Recovering/Resolving]
  - Therapeutic response unexpected [Unknown]
  - Anxiety [Recovering/Resolving]
  - Drug interaction [Unknown]
  - Pre-existing condition improved [Unknown]
  - Pain [Recovering/Resolving]
